FAERS Safety Report 8495841-8 (Version None)
Quarter: 2012Q3

REPORT INFORMATION
  Report Type: 
  Country: None (occurrence: None)
  Receive Date: 20120709
  Receipt Date: 20120704
  Transmission Date: 20120928
  Serious: Yes (Other)
  Sender: FDA-Public Use
  Company Number: PHHY2011CA62814

PATIENT
  Sex: Female

DRUGS (5)
  1. VITAMIN D [Concomitant]
     Dosage: 2000 IU, UNK
  2. ZOLEDRONOC ACID [Suspect]
     Indication: OSTEOPOROSIS
     Dosage: 5 MG, ONCE YEARLY
     Route: 042
     Dates: start: 20100723
  3. SIMVASTATIN [Concomitant]
     Dosage: UNK UKN, UNK
     Route: 048
  4. ZOLEDRONOC ACID [Suspect]
     Dosage: 5 MG, ONCE YEARLY
     Route: 042
     Dates: start: 20110819
  5. HYDROCHLOROTHIAZIDE [Concomitant]
     Dosage: 12.5 MG, UNK

REACTIONS (1)
  - POLYP [None]
